FAERS Safety Report 7045300-4 (Version None)
Quarter: 2010Q4

REPORT INFORMATION
  Report Type: 
  Country: None (occurrence: None)
  Receive Date: 20101014
  Receipt Date: 20100809
  Transmission Date: 20110411
  Serious: No
  Sender: FDA-Public Use
  Company Number: US-ALLERGAN-1010303US

PATIENT

DRUGS (1)
  1. LATISSE [Suspect]
     Indication: PRODUCT USED FOR UNKNOWN INDICATION
     Dosage: UNK
     Dates: start: 20100501

REACTIONS (4)
  - DRY EYE [None]
  - EYE PRURITUS [None]
  - OCULAR HYPERAEMIA [None]
  - WRONG TECHNIQUE IN DRUG USAGE PROCESS [None]
